FAERS Safety Report 9201406 (Version 2)
Quarter: 2013Q2

REPORT INFORMATION
  Report Type: Spontaneous
  Country: US (occurrence: US)
  Receive Date: 20130401
  Receipt Date: 20130422
  Transmission Date: 20140414
  Serious: No
  Sender: FDA-Public Use
  Company Number: US-PFIZER INC-2013099778

PATIENT
  Age: 70 Year
  Sex: Female
  Weight: 68 kg

DRUGS (5)
  1. PRISTIQ [Suspect]
     Indication: DEPRESSION
     Dosage: UNK, 1X/DAY
     Route: 048
     Dates: end: 20130112
  2. VENLAFAXINE HCL [Suspect]
     Indication: DEPRESSION
     Dosage: 25 MG, 3X/DAY
     Dates: start: 2013
  3. ABILIFY [Concomitant]
     Indication: DEPRESSION
     Dosage: 2.5 MG, UNK
  4. ABILIFY [Concomitant]
     Indication: POST-TRAUMATIC STRESS DISORDER
  5. BUPROPION [Concomitant]
     Dosage: 75 MG, UNK

REACTIONS (3)
  - Somnolence [Unknown]
  - Feeling abnormal [Unknown]
  - Drug ineffective [Unknown]
